FAERS Safety Report 6599801-3 (Version None)
Quarter: 2010Q1

REPORT INFORMATION
  Report Type: 
  Country: None (occurrence: None)
  Receive Date: 20100216
  Receipt Date: 20100129
  Transmission Date: 20100710
  Serious: Yes (Hospitalization)
  Sender: FDA-Public Use
  Company Number: FKO201000001

PATIENT
  Age: 47 Year
  Sex: Female

DRUGS (5)
  1. EPIRUBICIN [Suspect]
     Indication: BREAST CANCER
  2. CYCLOPHOSPHAMIDE [Suspect]
     Indication: BREAST CANCER
  3. TAXOL [Concomitant]
  4. DESFLURANE (DESFLURANE) (DESFLURANE) [Concomitant]
  5. REMIFENTANIL (REMIFENTANIL) (REMIFENTANIL) [Concomitant]

REACTIONS (7)
  - ALOPECIA [None]
  - ATRIOVENTRICULAR BLOCK COMPLETE [None]
  - ATRIOVENTRICULAR BLOCK SECOND DEGREE [None]
  - BRADYCARDIA [None]
  - CARDIOTOXICITY [None]
  - MASTECTOMY [None]
  - VENTRICULAR EXTRASYSTOLES [None]
